FAERS Safety Report 5225620-6 (Version None)
Quarter: 2007Q1

REPORT INFORMATION
  Report Type: 
  Country: None (occurrence: None)
  Receive Date: 20061201
  Receipt Date: 20060912
  Transmission Date: 20070707
  Serious: No
  Sender: FDA-Public Use
  Company Number: US200609002872

PATIENT
  Age: 45 Year
  Sex: Male

DRUGS (7)
  1. CYMBALTA [Suspect]
     Indication: NEUROPATHY
     Dosage: SEE IMAGE
     Route: 048
     Dates: start: 20060701, end: 20060910
  2. CYMBALTA [Suspect]
     Indication: NEUROPATHY
     Dosage: SEE IMAGE
     Route: 048
     Dates: start: 20060911
  3. SYNTHROID [Concomitant]
  4. TOPRAL (SULTOPRIDE) [Concomitant]
  5. HYDROCHLOROTHIAZIDE [Concomitant]
  6. ACIPHEX [Concomitant]
  7. ARTHROTEC [Concomitant]

REACTIONS (4)
  - HYPERHIDROSIS [None]
  - INSOMNIA [None]
  - POOR QUALITY SLEEP [None]
  - SUDDEN ONSET OF SLEEP [None]
